FAERS Safety Report 9224436 (Version 1)
Quarter: 2013Q1

REPORT INFORMATION
  Report Type: Spontaneous
  Country: CA (occurrence: None)
  Receive Date: 20120925
  Receipt Date: 20120925
  Transmission Date: 20140127
  Serious: Yes (Other)
  Sender: FDA-Public Use
  Company Number: 805404

PATIENT
  Age: 54 Year
  Sex: Female
  Weight: 79.38 kg

DRUGS (1)
  1. NIX [Suspect]
     Indication: LICE INFESTATION
     Dosage: 2 OZ APPLICATION X1?
     Dates: start: 200704, end: 200704

REACTIONS (4)
  - Pyrexia [None]
  - Nausea [None]
  - Vomiting [None]
  - Skin exfoliation [None]
